FAERS Safety Report 8069901-X (Version None)
Quarter: 2012Q1

REPORT INFORMATION
  Report Type: 
  Country: None (occurrence: None)
  Receive Date: 20120125
  Receipt Date: 20120113
  Transmission Date: 20120608
  Serious: Yes (Hospitalization, Other)
  Sender: FDA-Public Use
  Company Number: US-ELI_LILLY_AND_COMPANY-US201201004696

PATIENT
  Sex: Female

DRUGS (24)
  1. OXYCONTIN [Concomitant]
  2. SKELAXIN [Concomitant]
     Dosage: 400 MG, PRN
  3. BENTYL [Concomitant]
     Dosage: UNK, PRN
     Route: 065
  4. FORTEO [Suspect]
     Indication: OSTEOPOROSIS
     Dosage: 20 UG, QD
     Route: 065
     Dates: start: 20111216, end: 20111216
  5. AMBIEN [Concomitant]
     Dosage: 10 MG, EACH EVENING
     Route: 065
  6. ELESTAT [Concomitant]
     Indication: HYPERSENSITIVITY
     Dosage: UNK, PRN
     Route: 047
  7. VITAMIN TAB [Concomitant]
  8. MYCOPHENOLATE MOFETIL (CELLCEPT) [Concomitant]
     Dosage: 500 MG, BID
     Route: 065
  9. PLAQUENIL [Concomitant]
     Dosage: 200 MG, BID
     Route: 065
  10. SYNTHROID [Concomitant]
     Dosage: UNK UNK, QD
     Route: 065
  11. SINEMET [Concomitant]
     Indication: RESTLESS LEGS SYNDROME
     Dosage: 25 MG, QD
     Route: 065
  12. XYZAL [Concomitant]
     Dosage: UNK, PRN
     Route: 065
  13. OXYBUTYNIN [Concomitant]
     Dosage: 5 MG, QD
     Route: 065
  14. NASONEX [Concomitant]
     Dosage: UNK, PRN
     Route: 065
  15. CYMBALTA [Suspect]
     Indication: FIBROMYALGIA
     Dosage: 60 MG, QD
  16. PREDNISONE TAB [Concomitant]
     Dosage: 10 MG, QD
     Route: 065
  17. MECLOMEN [Concomitant]
     Dosage: 50 MG, BID
     Route: 065
  18. NEXIUM [Concomitant]
     Dosage: 40 MG, QD
     Route: 065
  19. OXYCODONE HCL [Concomitant]
  20. CARDENE [Concomitant]
     Dosage: 45 MG, TID
     Route: 065
  21. SKELAXIN [Concomitant]
     Dosage: 800 MG, PRN
  22. ESTRACE [Concomitant]
     Dosage: 1 MG, QD
     Route: 065
  23. XANAX [Concomitant]
     Dosage: UNK, PRN
     Route: 065
  24. DURAGESIC-100 [Concomitant]
     Dosage: 25 UG, 2/W

REACTIONS (18)
  - FEELING HOT [None]
  - DRUG INEFFECTIVE [None]
  - BONE DISORDER [None]
  - PAIN [None]
  - FIBROMYALGIA [None]
  - ARTHRITIS [None]
  - HIP FRACTURE [None]
  - CONTUSION [None]
  - MYALGIA [None]
  - OEDEMA PERIPHERAL [None]
  - PELVIC FRACTURE [None]
  - ARTHRALGIA [None]
  - BONE PAIN [None]
  - MIGRAINE [None]
  - LIMB INJURY [None]
  - PAIN IN EXTREMITY [None]
  - SJOGREN'S SYNDROME [None]
  - NEUROPATHY PERIPHERAL [None]
